FAERS Safety Report 4542546-1 (Version None)
Quarter: 2004Q4

REPORT INFORMATION
  Report Type: 
  Country: None (occurrence: None)
  Receive Date: 20041230
  Receipt Date: 20041220
  Transmission Date: 20050328
  Serious: Yes (Other)
  Sender: FDA-Public Use
  Company Number: AU-MERCK-0412AUS00115

PATIENT

DRUGS (2)
  1. ZETIA [Suspect]
     Route: 048
  2. ATORVASTATIN CALCIUM [Concomitant]
     Route: 065

REACTIONS (2)
  - ABDOMINAL PAIN [None]
  - PANCREATIC ENZYMES INCREASED [None]
